FAERS Safety Report 5189679-7 (Version None)
Quarter: 2006Q4

REPORT INFORMATION
  Report Type: 
  Country: None (occurrence: None)
  Receive Date: 20061221
  Receipt Date: 20051116
  Transmission Date: 20070319
  Serious: No
  Sender: FDA-Public Use
  Company Number: US-AMGEN-US158230

PATIENT
  Sex: Male
  Weight: 118 kg

DRUGS (6)
  1. ENBREL [Suspect]
     Indication: PSORIASIS
     Route: 058
     Dates: start: 20051109
  2. METHOTREXATE [Concomitant]
     Dates: start: 20051012
  3. DEXAMETHASONE [Concomitant]
     Dates: start: 20051012, end: 20051102
  4. ATENOLOL [Concomitant]
  5. UNIRETIC [Concomitant]
  6. TRIAMCINOLONE [Concomitant]
     Route: 061
     Dates: start: 20050801

REACTIONS (7)
  - ASTHENIA [None]
  - CONDITION AGGRAVATED [None]
  - DISTURBANCE IN ATTENTION [None]
  - NAUSEA [None]
  - PRURITUS [None]
  - PSORIASIS [None]
  - RASH [None]
